FAERS Safety Report 4787381-4 (Version None)
Quarter: 2005Q4

REPORT INFORMATION
  Report Type: 
  Country: None (occurrence: None)
  Receive Date: 20051003
  Receipt Date: 20050921
  Transmission Date: 20060501
  Serious: Yes (Hospitalization)
  Sender: FDA-Public Use
  Company Number: S05-USA-04402-01

PATIENT
  Age: 83 Year
  Sex: Female

DRUGS (7)
  1. NAMENDA [Suspect]
     Indication: DEMENTIA
     Dosage: 5 MG, QD PO
     Route: 048
     Dates: start: 20040101, end: 20040101
  2. NAMENDA [Suspect]
     Indication: DEMENTIA
     Dosage: 5 MG BID, PO
     Route: 048
     Dates: start: 20040101, end: 20040101
  3. NAMENDA [Suspect]
     Indication: DEMENTIA
     Dosage: 15 MG QD, PO
     Route: 048
     Dates: start: 20040101, end: 20040101
  4. NAMENDA [Suspect]
     Indication: DEMENTIA
     Dosage: 10 MG BID, PO
     Route: 048
     Dates: start: 20040101
  5. ARICEPT [Concomitant]
  6. ZYPREXA [Concomitant]
  7. MULTI-VITAMIN [Concomitant]

REACTIONS (9)
  - CHEST PAIN [None]
  - CONFUSIONAL STATE [None]
  - DEEP VEIN THROMBOSIS [None]
  - ESCHERICHIA URINARY TRACT INFECTION [None]
  - HYPERSOMNIA [None]
  - MENTAL STATUS CHANGES [None]
  - MYOCARDIAL INFARCTION [None]
  - OEDEMA PERIPHERAL [None]
  - URINARY INCONTINENCE [None]
